FAERS Safety Report 15595392 (Version 1)
Quarter: 2018Q4

REPORT INFORMATION
  Report Type: Spontaneous
  Country: GB (occurrence: GB)
  Receive Date: 20181107
  Receipt Date: 20181107
  Transmission Date: 20190205
  Serious: Yes (Disabling, Other)
  Sender: FDA-Public Use
  Company Number: GB-TEVA-2018-GB-972230

PATIENT
  Age: 47 Year
  Sex: Male

DRUGS (16)
  1. SALBUTAMOL [Concomitant]
     Active Substance: ALBUTEROL
     Route: 055
     Dates: start: 20180509
  2. E45 [Concomitant]
     Active Substance: LANOLIN\LIGHT MINERAL OIL\PARAFFIN
     Dosage: APPLY
     Route: 065
     Dates: start: 20180509
  3. PARACETAMOL [Concomitant]
     Active Substance: ACETAMINOPHEN
     Dosage: TAKE 1 OR 2 4 TIMES/DAY.
     Route: 065
     Dates: start: 20180509
  4. METROGEL [Concomitant]
     Active Substance: METRONIDAZOLE
     Dosage: 2 DOSAGE FORMS DAILY; APPLY
     Route: 065
     Dates: start: 20180907, end: 20180908
  5. PREDNISOLONE. [Concomitant]
     Active Substance: PREDNISOLONE
     Dosage: 6 DOSAGE FORMS DAILY; IN THE MORNING
     Route: 065
     Dates: start: 20180907, end: 20180912
  6. BETNOVATE [Concomitant]
     Active Substance: BETAMETHASONE
     Dosage: 1 DOSAGE FORMS DAILY; APPLY AS DIRECTED.
     Route: 065
     Dates: start: 20180509
  7. OXYTETRACYCLINE [Concomitant]
     Active Substance: OXYTETRACYCLINE
     Dosage: 4 DOSAGE FORMS DAILY; FOR THREE WEEKS
     Route: 065
     Dates: start: 20180723, end: 20180820
  8. ISOSORBIDE MONONITRATE. [Suspect]
     Active Substance: ISOSORBIDE MONONITRATE
     Route: 065
     Dates: start: 20181008
  9. ATARAX [Concomitant]
     Active Substance: HYDROXYZINE HYDROCHLORIDE
     Dosage: 1 DOSAGE FORMS DAILY; NIGHT AS DIRECTED.
     Route: 065
     Dates: start: 20180509, end: 20180919
  10. IVERMECTIN. [Concomitant]
     Active Substance: IVERMECTIN
     Dosage: 1 DOSAGE FORMS DAILY; APPLY
     Route: 065
     Dates: start: 20180806
  11. DOXYCYCLINE. [Concomitant]
     Active Substance: DOXYCYCLINE
     Dosage: 1 DOSAGE FORMS DAILY;
     Route: 065
     Dates: start: 20180907, end: 20181007
  12. HYDROCORTISONE. [Concomitant]
     Active Substance: HYDROCORTISONE
     Dosage: 2 DOSAGE FORMS DAILY; APPLY
     Route: 065
     Dates: start: 20180723, end: 20180806
  13. LYMECYCLINE [Concomitant]
     Active Substance: LYMECYCLINE
     Indication: ACNE
     Dosage: 1 DOSAGE FORMS DAILY;
     Route: 065
     Dates: start: 20180806
  14. MEBEVERINE HYDROCHLORIDE [Concomitant]
     Active Substance: MEBEVERINE HYDROCHLORIDE
     Dosage: 3 DOSAGE FORMS DAILY;
     Route: 065
     Dates: start: 20180509
  15. QVAR [Concomitant]
     Active Substance: BECLOMETHASONE DIPROPIONATE
     Dosage: 2 DOSAGE FORMS DAILY;
     Route: 055
     Dates: start: 20180509
  16. TRAMADOL. [Concomitant]
     Active Substance: TRAMADOL
     Dosage: TAKE ONE OR TWO THREE TIMES DAILY.
     Route: 065
     Dates: start: 20180509

REACTIONS (2)
  - Headache [Recovering/Resolving]
  - Myalgia [Recovering/Resolving]

NARRATIVE: CASE EVENT DATE: 20181008
